FAERS Safety Report 18888230 (Version 1)
Quarter: 2021Q1

REPORT INFORMATION
  Report Type: Report from Study
  Country: CA (occurrence: CA)
  Receive Date: 20210212
  Receipt Date: 20210212
  Transmission Date: 20210420
  Serious: Yes (Other)
  Sender: FDA-Public Use
  Company Number: CA-GLAXOSMITHKLINE-CA2020AMR209238

PATIENT
  Sex: Female

DRUGS (7)
  1. PREDNISOLONE. [Concomitant]
     Active Substance: PREDNISOLONE
     Indication: PRODUCT USED FOR UNKNOWN INDICATION
     Dosage: UNK
  2. SALBUTAMOL SULPHATE [Suspect]
     Active Substance: ALBUTEROL SULFATE
     Indication: EOSINOPHILIC GRANULOMATOSIS WITH POLYANGIITIS
     Dosage: UNK
  3. AVAMYS [Suspect]
     Active Substance: FLUTICASONE FUROATE
     Indication: PRODUCT USED FOR UNKNOWN INDICATION
     Dosage: UNK
  4. PREDNISONE. [Suspect]
     Active Substance: PREDNISONE
     Indication: ASTHMA
     Dosage: 50 MG, QD
     Dates: start: 20200408
  5. PREDNISONE. [Suspect]
     Active Substance: PREDNISONE
     Dosage: 40 MG, QD
     Dates: start: 20200925
  6. PREDNISONE. [Suspect]
     Active Substance: PREDNISONE
     Dosage: 7.5 MG, QD
     Dates: start: 20200408
  7. COVID?19 VACCINE NOS. [Suspect]
     Active Substance: COVID-19 VACCINE NOS
     Indication: PROPHYLAXIS
     Dosage: UNK

REACTIONS (7)
  - Pulmonary embolism [Unknown]
  - Immunosuppression [Unknown]
  - Asthma [Unknown]
  - Pleural effusion [Unknown]
  - Nonspecific reaction [Unknown]
  - Blood count abnormal [Unknown]
  - Therapeutic product effect incomplete [Unknown]
